FAERS Safety Report 4606560-X (Version None)
Quarter: 2005Q2

REPORT INFORMATION
  Report Type: 
  Country: None (occurrence: None)
  Receive Date: 20050223
  Receipt Date: 20040805
  Transmission Date: 20051028
  Serious: Yes (Disabling, Other)
  Sender: FDA-Public Use
  Company Number: WAES 0408USA00483

PATIENT
  Age: 59 Year
  Sex: Female

DRUGS (3)
  1. ZOCOR [Suspect]
     Indication: BLOOD CHOLESTEROL INCREASED
     Dosage: 20 MG/DAILY/PO
     Route: 048
     Dates: start: 20031101, end: 20040730
  2. PRINIVIL [Concomitant]
  3. METFORMIN HCL [Concomitant]

REACTIONS (1)
  - MYALGIA [None]
